FAERS Safety Report 23558795 (Version 1)
Quarter: 2024Q1

REPORT INFORMATION
  Report Type: Spontaneous
  Country: US (occurrence: US)
  Receive Date: 20240223
  Receipt Date: 20240223
  Transmission Date: 20240409
  Serious: No
  Sender: FDA-Public Use
  Company Number: US-BAUSCHBL-2024BNL001959

PATIENT
  Age: 75 Year
  Sex: Female

DRUGS (3)
  1. MURO 128 [Suspect]
     Active Substance: SODIUM CHLORIDE
     Indication: Corneal erosion
     Route: 047
     Dates: start: 20240212
  2. LATANOPROST [Suspect]
     Active Substance: LATANOPROST
     Indication: Glaucoma
     Dosage: AT BEDTIME
     Route: 065
  3. RESTASIS [Suspect]
     Active Substance: CYCLOSPORINE
     Indication: Dry eye
     Route: 065

REACTIONS (8)
  - Eye irritation [Unknown]
  - Foreign body sensation in eyes [Unknown]
  - Product odour abnormal [Unknown]
  - Product quality issue [Unknown]
  - Product lot number issue [Unknown]
  - Product physical consistency issue [Unknown]
  - Product colour issue [Unknown]
  - Counterfeit product administered [Unknown]

NARRATIVE: CASE EVENT DATE: 20240201
